FAERS Safety Report 8425434-X (Version None)
Quarter: 2012Q2

REPORT INFORMATION
  Report Type: 
  Country: None (occurrence: None)
  Receive Date: 20120611
  Receipt Date: 20120528
  Transmission Date: 20120825
  Serious: Yes (Hospitalization, Other)
  Sender: FDA-Public Use
  Company Number: US-ACCORD-013694

PATIENT
  Age: 61 Year
  Sex: Male

DRUGS (3)
  1. ECHINACEA [Interacting]
  2. CISPLATIN [Suspect]
     Indication: NON-SMALL CELL LUNG CANCER
  3. ETOPOSIDE [Interacting]
     Indication: NON-SMALL CELL LUNG CANCER

REACTIONS (3)
  - THROMBOCYTOPENIA [None]
  - OFF LABEL USE [None]
  - DRUG INTERACTION [None]
